FAERS Safety Report 10273152 (Version 8)
Quarter: 2019Q4

REPORT INFORMATION
  Report Type: Spontaneous
  Country: CA (occurrence: CA)
  Receive Date: 20140702
  Receipt Date: 20191203
  Transmission Date: 20200122
  Serious: Yes (Hospitalization, Other)
  Sender: FDA-Public Use
  Company Number: CA-BAYER-2014-093365

PATIENT
  Age: 63 Year
  Sex: Female

DRUGS (3)
  1. AVELOX [Suspect]
     Active Substance: MOXIFLOXACIN HYDROCHLORIDE
     Indication: HELICOBACTER INFECTION
     Dosage: 400 MG, UNK
     Dates: start: 20140501, end: 20140507
  2. AMOXICILLIN. [Suspect]
     Active Substance: AMOXICILLIN
     Indication: HELICOBACTER INFECTION
     Dosage: 500 MG, BID
     Dates: start: 20140501
  3. ESOMEPRAZOLE. [Suspect]
     Active Substance: ESOMEPRAZOLE MAGNESIUM
     Indication: HELICOBACTER INFECTION
     Dosage: 20 MG, QD
     Dates: start: 20140501

REACTIONS (25)
  - Suicidal ideation [None]
  - Hospitalisation [None]
  - Feeling abnormal [Not Recovered/Not Resolved]
  - Hallucination, auditory [Not Recovered/Not Resolved]
  - Psychotic disorder [Not Recovered/Not Resolved]
  - Anxiety [None]
  - Heart rate increased [Not Recovered/Not Resolved]
  - Toxicity to various agents [Not Recovered/Not Resolved]
  - Drug hypersensitivity [None]
  - Anxiety [Not Recovered/Not Resolved]
  - Fear [None]
  - Malaise [Not Recovered/Not Resolved]
  - Blood thyroid stimulating hormone increased [None]
  - Anti-thyroid antibody positive [None]
  - Anhedonia [None]
  - Blood thyroid stimulating hormone increased [None]
  - Deafness [Not Recovered/Not Resolved]
  - Anxiety [None]
  - Anti-thyroid antibody positive [None]
  - Hypoaesthesia [Not Recovered/Not Resolved]
  - Depressed mood [Not Recovered/Not Resolved]
  - Depression [None]
  - Nightmare [None]
  - Stress [None]
  - Tinnitus [Not Recovered/Not Resolved]

NARRATIVE: CASE EVENT DATE: 2014
